FAERS Safety Report 7301367-7 (Version None)
Quarter: 2011Q1

REPORT INFORMATION
  Report Type: 
  Country: None (occurrence: None)
  Receive Date: 20110113
  Receipt Date: 20100913
  Transmission Date: 20110831
  Serious: No
  Sender: FDA-Public Use
  Company Number: US-001298

PATIENT
  Sex: Female
  Weight: 62.9139 kg

DRUGS (3)
  1. KUVAN [Suspect]
     Indication: PHENYLKETONURIA
     Dosage: (1400 MG QD ORAL) (1400 MG QD ORAL)
     Route: 048
     Dates: end: 20100101
  2. KUVAN [Suspect]
     Indication: PHENYLKETONURIA
     Dosage: (1400 MG QD ORAL) (1400 MG QD ORAL)
     Route: 048
     Dates: start: 20100101
  3. ADDERALL 10 [Concomitant]

REACTIONS (1)
  - URINARY TRACT INFECTION [None]
